FAERS Safety Report 6599834-7 (Version None)
Quarter: 2010Q1

REPORT INFORMATION
  Report Type: 
  Country: None (occurrence: None)
  Receive Date: 20100217
  Receipt Date: 20100203
  Transmission Date: 20100710
  Serious: Yes (Other)
  Sender: FDA-Public Use
  Company Number: US-1180746

PATIENT

DRUGS (1)
  1. BSS [Suspect]
     Dosage: (INTRAOCULAR)

REACTIONS (4)
  - ANTERIOR CHAMBER INFLAMMATION [None]
  - EYE PAIN [None]
  - OCULAR HYPERAEMIA [None]
  - POST PROCEDURAL COMPLICATION [None]
